FAERS Safety Report 8210881-1 (Version None)
Quarter: 2012Q1

REPORT INFORMATION
  Report Type: 
  Country: None (occurrence: None)
  Receive Date: 20120315
  Receipt Date: 20120308
  Transmission Date: 20120608
  Serious: Yes (Hospitalization, Other)
  Sender: FDA-Public Use
  Company Number: US-BAYER-201026444NA

PATIENT
  Age: 47 Year
  Sex: Female
  Weight: 66.984 kg

DRUGS (4)
  1. FLONASE [Concomitant]
     Dosage: UNK UNK, BID
     Route: 045
  2. YASMIN [Suspect]
     Indication: ACNE
     Dosage: UNK
     Route: 048
     Dates: start: 20040301, end: 20040801
  3. LORATADINE [Concomitant]
  4. YAZ [Suspect]
     Indication: ACNE
     Route: 048
     Dates: start: 20040301

REACTIONS (2)
  - STRESS [None]
  - PULMONARY EMBOLISM [None]
